FAERS Safety Report 5238848-6 (Version None)
Quarter: 2007Q1

REPORT INFORMATION
  Report Type: 
  Country: None (occurrence: None)
  Receive Date: 20070215
  Receipt Date: 20070207
  Transmission Date: 20070707
  Serious: Yes (Other)
  Sender: FDA-Public Use
  Company Number: AR-PFIZER INC-2007008890

PATIENT
  Sex: Male
  Weight: 72 kg

DRUGS (2)
  1. AZULFIDINE [Suspect]
     Indication: INFLAMMATORY BOWEL DISEASE
     Dosage: DAILY DOSE:3GRAM
     Dates: start: 20070124, end: 20070131
  2. ALPLAX DIGEST [Concomitant]

REACTIONS (2)
  - ABDOMINAL DISCOMFORT [None]
  - HYPERSENSITIVITY [None]
